FAERS Safety Report 11972961 (Version 10)
Quarter: 2018Q2

REPORT INFORMATION
  Report Type: Spontaneous
  Country: US (occurrence: US)
  Receive Date: 20160128
  Receipt Date: 20180402
  Transmission Date: 20180711
  Serious: Yes (Hospitalization, Disabling)
  Sender: FDA-Public Use
  Company Number: US-ENDO PHARMACEUTICALS INC.-2016-000662

PATIENT
  Age: 53 Year
  Sex: Male
  Weight: 106.69 kg

DRUGS (3)
  1. TESTIM [Suspect]
     Active Substance: TESTOSTERONE
     Indication: ANDROGEN REPLACEMENT THERAPY
     Dosage: UNK, DAILY
     Route: 062
     Dates: start: 2008, end: 2013
  2. LEVOTHYROXINE SODIUM TABLETS [Concomitant]
     Active Substance: LEVOTHYROXINE SODIUM
     Dosage: UNK UNKNOWN, UNKNOWN
     Route: 065
     Dates: start: 1990
  3. HYDROCODONE [Concomitant]
     Active Substance: HYDROCODONE
     Indication: PAIN
     Dosage: UNK UNKNOWN, UNKNOWN
     Route: 065
     Dates: start: 2000

REACTIONS (5)
  - Cardiac failure congestive [Unknown]
  - Acute myocardial infarction [Not Recovered/Not Resolved]
  - Acute respiratory failure [Unknown]
  - Pain [Unknown]
  - Diabetes mellitus [Unknown]

NARRATIVE: CASE EVENT DATE: 201104
